FAERS Safety Report 17653942 (Version 3)
Quarter: 2020Q2

REPORT INFORMATION
  Report Type: Spontaneous
  Country: US (occurrence: US)
  Receive Date: 20200410
  Receipt Date: 20200420
  Transmission Date: 20200713
  Serious: Yes (Other)
  Sender: FDA-Public Use
  Company Number: US-ROCHE-2577171

PATIENT
  Age: 90 Year
  Sex: Male
  Weight: 71.73 kg

DRUGS (4)
  1. PREDNISOLONE. [Concomitant]
     Active Substance: PREDNISOLONE
     Indication: SWELLING
     Dosage: LEFT EYE
     Route: 065
  2. PREDNISOLONE. [Concomitant]
     Active Substance: PREDNISOLONE
     Indication: PAIN
  3. LUCENTIS [Suspect]
     Active Substance: RANIBIZUMAB
     Indication: NEOVASCULAR AGE-RELATED MACULAR DEGENERATION
     Dosage: EVERY 6-8 WEEKS
     Route: 065
     Dates: end: 20161115
  4. DORZOLAMIDE [Concomitant]
     Active Substance: DORZOLAMIDE
     Dosage: RIGHT EYE
     Route: 065

REACTIONS (9)
  - Eye swelling [Not Recovered/Not Resolved]
  - Vitreous floaters [Unknown]
  - Eye disorder [Not Recovered/Not Resolved]
  - Ocular hyperaemia [Not Recovered/Not Resolved]
  - Product contamination [Unknown]
  - Eye pain [Unknown]
  - Blindness unilateral [Unknown]
  - Suspected transmission of an infectious agent via product [Unknown]
  - Infection [Unknown]

NARRATIVE: CASE EVENT DATE: 20161120
